FAERS Safety Report 18447747 (Version 2)
Quarter: 2022Q3

REPORT INFORMATION
  Report Type: Spontaneous
  Country: US (occurrence: None)
  Receive Date: 20201030
  Receipt Date: 20220726
  Transmission Date: 20221027
  Serious: Yes (Death)
  Sender: FDA-Public Use
  Company Number: 2020SF40895

PATIENT
  Sex: Male
  Weight: 101.5 kg

DRUGS (40)
  1. SEROQUEL [Suspect]
     Active Substance: QUETIAPINE FUMARATE
     Dosage: 400.0MG UNKNOWN
     Route: 048
     Dates: start: 2013
  2. SEROQUEL [Suspect]
     Active Substance: QUETIAPINE FUMARATE
     Dosage: GENERIC UNKNOWN
     Route: 065
     Dates: start: 20190419
  3. BENZTROPINE [Concomitant]
     Active Substance: BENZTROPINE
  4. LIPITOR [Concomitant]
     Active Substance: ATORVASTATIN CALCIUM
  5. XANAX [Concomitant]
     Active Substance: ALPRAZOLAM
  6. LISINOPRIL [Concomitant]
     Active Substance: LISINOPRIL
  7. AFLURIA NOS [Concomitant]
     Active Substance: INFLUENZA VIRUS VACCINE TRIVALENT TYPE A+B AFLURIA
  8. HYDROCODONE [Concomitant]
     Active Substance: HYDROCODONE
  9. GABAPENTIN [Concomitant]
     Active Substance: GABAPENTIN
  10. LAMOTRIGINE [Concomitant]
     Active Substance: LAMOTRIGINE
  11. PREDNISONE [Concomitant]
     Active Substance: PREDNISONE
  12. TEMAZEPAM [Concomitant]
     Active Substance: TEMAZEPAM
  13. AMBIEN [Concomitant]
     Active Substance: ZOLPIDEM TARTRATE
  14. CLONIDINE [Concomitant]
     Active Substance: CLONIDINE
  15. MELATONIN [Concomitant]
     Active Substance: MELATONIN
  16. TYLENOL [Concomitant]
     Active Substance: ACETAMINOPHEN
  17. SOMA [Concomitant]
     Active Substance: CARISOPRODOL
  18. NAPROSYN [Concomitant]
     Active Substance: NAPROXEN
  19. VICODIN [Concomitant]
     Active Substance: ACETAMINOPHEN\HYDROCODONE BITARTRATE
  20. CAFFEINE [Concomitant]
     Active Substance: CAFFEINE
  21. PERCOCET [Concomitant]
     Active Substance: ACETAMINOPHEN\OXYCODONE HYDROCHLORIDE
  22. FLEXERIL [Concomitant]
     Active Substance: CYCLOBENZAPRINE HYDROCHLORIDE
  23. BACTRIM [Concomitant]
     Active Substance: SULFAMETHOXAZOLE\TRIMETHOPRIM
  24. MEDROL [Concomitant]
     Active Substance: METHYLPREDNISOLONE
  25. AUGMENTIN [Concomitant]
     Active Substance: AMOXICILLIN\CLAVULANATE POTASSIUM
  26. TRAZODONE [Concomitant]
     Active Substance: TRAZODONE HYDROCHLORIDE
  27. ROBITUSSIN (GUAIFENESIN) [Concomitant]
     Active Substance: GUAIFENESIN
  28. CODEINE [Concomitant]
     Active Substance: CODEINE
  29. PHENERGAN [Concomitant]
     Active Substance: PROMETHAZINE HYDROCHLORIDE
  30. ZYRTEC [Concomitant]
     Active Substance: CETIRIZINE HYDROCHLORIDE
  31. ADVIL [Concomitant]
     Active Substance: IBUPROFEN
  32. LEXAPRO [Concomitant]
     Active Substance: ESCITALOPRAM OXALATE
  33. FLECTOR [Concomitant]
     Active Substance: DICLOFENAC EPOLAMINE
  34. FINASTERIDE [Concomitant]
     Active Substance: FINASTERIDE
  35. LYRICA [Concomitant]
     Active Substance: PREGABALIN
  36. AMMONIUM CHLORIDE\DEXTROMETHORPHAN\SODIUM CITRATE [Concomitant]
     Active Substance: AMMONIUM CHLORIDE\DEXTROMETHORPHAN\SODIUM CITRATE
  37. ETHYL ALCOHOL [Concomitant]
     Active Substance: ALCOHOL
  38. BENZTROPINE [Concomitant]
     Active Substance: BENZTROPINE
  39. LUNESTA [Concomitant]
     Active Substance: ESZOPICLONE
  40. CLONIDINE HYDROCHLORIDE [Concomitant]
     Active Substance: CLONIDINE HYDROCHLORIDE

REACTIONS (4)
  - Cardiac failure [Fatal]
  - Sleep apnoea syndrome [Unknown]
  - Hypertension [Unknown]
  - Hypercholesterolaemia [Unknown]
